FAERS Safety Report 11330425 (Version 1)
Quarter: 2015Q3

REPORT INFORMATION
  Report Type: Spontaneous
  Country: US (occurrence: None)
  Receive Date: 20150730
  Receipt Date: 20150730
  Transmission Date: 20151125
  Serious: No
  Sender: FDA-Public Use
  Company Number: None

PATIENT
  Age: 66 Year
  Sex: Female
  Weight: 51.71 kg

DRUGS (1)
  1. PREDNISONE. [Suspect]
     Active Substance: PREDNISONE

REACTIONS (12)
  - Somnolence [None]
  - Loss of consciousness [None]
  - Colitis microscopic [None]
  - Diabetes mellitus [None]
  - Iron deficiency anaemia [None]
  - Gastric ulcer haemorrhage [None]
  - General physical health deterioration [None]
  - Ageusia [None]
  - Tremor [None]
  - Drug withdrawal syndrome [None]
  - Diarrhoea [None]
  - Weight decreased [None]

NARRATIVE: CASE EVENT DATE: 20150402
